FAERS Safety Report 5708105-X (Version None)
Quarter: 2008Q2

REPORT INFORMATION
  Report Type: 
  Country: None (occurrence: None)
  Receive Date: 20080414
  Receipt Date: 20080408
  Transmission Date: 20081010
  Serious: Yes (Hospitalization)
  Sender: FDA-Public Use
  Company Number: L08-JPN-01082-01

PATIENT
  Age: 77 Year
  Sex: Male

DRUGS (1)
  1. CARBAMAZEPINE [Suspect]
     Indication: CONVULSION
     Dates: start: 20060401

REACTIONS (12)
  - ALANINE AMINOTRANSFERASE INCREASED [None]
  - ASPARTATE AMINOTRANSFERASE INCREASED [None]
  - BLOOD GLUCOSE INCREASED [None]
  - CRYPTOGENIC ORGANISING PNEUMONIA [None]
  - DRUG RASH WITH EOSINOPHILIA AND SYSTEMIC SYMPTOMS [None]
  - ERYTHEMA MULTIFORME [None]
  - HUMAN HERPES VIRUS 6 SEROLOGY POSITIVE [None]
  - INFLUENZA LIKE ILLNESS [None]
  - LUNG INFILTRATION [None]
  - OBLITERATIVE BRONCHIOLITIS [None]
  - PNEUMONIA BACTERIAL [None]
  - TOXIC SKIN ERUPTION [None]
